FAERS Safety Report 7118332-5 (Version None)
Quarter: 2010Q4

REPORT INFORMATION
  Report Type: 
  Country: None (occurrence: None)
  Receive Date: 20101123
  Receipt Date: 20101115
  Transmission Date: 20110411
  Serious: Yes (Other)
  Sender: FDA-Public Use
  Company Number: PHHY2010GB17047

PATIENT
  Sex: Male

DRUGS (2)
  1. CLOZARIL [Suspect]
     Indication: SCHIZOPHRENIA
     Dosage: 350 MG/DAY
     Route: 048
     Dates: start: 20070119, end: 20100322
  2. CLOZARIL [Suspect]
     Dosage: UNK
     Route: 048

REACTIONS (2)
  - DIZZINESS [None]
  - MENTAL IMPAIRMENT [None]
